FAERS Safety Report 11008247 (Version 1)
Quarter: 2015Q2

REPORT INFORMATION
  Report Type: Spontaneous
  Country: US (occurrence: None)
  Receive Date: 20150409
  Receipt Date: 20150409
  Transmission Date: 20150821
  Serious: No
  Sender: FDA-Public Use
  Company Number: None

PATIENT
  Age: 67 Year
  Sex: Male
  Weight: 74.4 kg

DRUGS (1)
  1. TAXOTERE [Suspect]
     Active Substance: DOCETAXEL
     Dates: start: 20150303, end: 20150324

REACTIONS (4)
  - Intra-abdominal haemorrhage [None]
  - Aortic aneurysm repair [None]
  - Blood pressure decreased [None]
  - Ventricular tachycardia [None]

NARRATIVE: CASE EVENT DATE: 20150324
